FAERS Safety Report 17415443 (Version 1)
Quarter: 2020Q1

REPORT INFORMATION
  Report Type: Spontaneous
  Country: JP (occurrence: JP)
  Receive Date: 20200213
  Receipt Date: 20200213
  Transmission Date: 20200409
  Serious: Yes (Hospitalization, Other)
  Sender: FDA-Public Use
  Company Number: JP-BRACCO-2020JP00667

PATIENT
  Age: 83 Year
  Sex: Female

DRUGS (4)
  1. OSTEOPOR [CALCIUM PHOSPHATE DIBASIC;COLECALCIFEROL;MAGNESIUM OXIDE [Concomitant]
  2. IOPAMIRON [Suspect]
     Active Substance: IOPAMIDOL
     Indication: PYELOGRAM RETROGRADE
     Dosage: UNK UNK, SINGLE
  3. FUROSEMIDE. [Concomitant]
     Active Substance: FUROSEMIDE
  4. FUROSEMIDE. [Concomitant]
     Active Substance: FUROSEMIDE
     Route: 042

REACTIONS (3)
  - Infusion site extravasation [Recovered/Resolved]
  - Acute kidney injury [Recovered/Resolved]
  - Anuria [Recovered/Resolved]
